FAERS Safety Report 8505552-8 (Version None)
Quarter: 2012Q3

REPORT INFORMATION
  Report Type: 
  Country: None (occurrence: None)
  Receive Date: 20120712
  Receipt Date: 20120703
  Transmission Date: 20120928
  Serious: Yes (Hospitalization, Other)
  Sender: FDA-Public Use
  Company Number: US-ELI_LILLY_AND_COMPANY-US201203009151

PATIENT
  Sex: Female

DRUGS (3)
  1. FORTEO [Suspect]
     Dosage: UNK, UNKNOWN
     Dates: start: 20110901
  2. FORTEO [Suspect]
     Dosage: UNK, UNKNOWN
     Dates: start: 20110901
  3. FORTEO [Suspect]
     Dosage: UNK, UNKNOWN
     Dates: start: 20110901

REACTIONS (5)
  - DRUG INEFFECTIVE [None]
  - MUSCULOSKELETAL PAIN [None]
  - JOINT DESTRUCTION [None]
  - SHOULDER ARTHROPLASTY [None]
  - BONE DENSITY ABNORMAL [None]
